FAERS Safety Report 5977368-8 (Version None)
Quarter: 2008Q4

REPORT INFORMATION
  Report Type: 
  Country: None (occurrence: None)
  Receive Date: 20081203
  Receipt Date: 20081125
  Transmission Date: 20090506
  Serious: Yes (Hospitalization)
  Sender: FDA-Public Use
  Company Number: PHHY2008CA29321

PATIENT
  Sex: Female

DRUGS (8)
  1. CLOZARIL [Suspect]
     Dosage: 175 MG, ONCE/SINGLE
     Route: 048
     Dates: start: 20081121, end: 20081121
  2. HALDOL [Concomitant]
  3. EPIVAL [Concomitant]
  4. ZYPREXA [Concomitant]
  5. SINGULAIR [Concomitant]
  6. PANTOPRAZOLE SODIUM [Concomitant]
  7. TEGRETOL [Concomitant]
  8. KEMADRIN [Concomitant]

REACTIONS (3)
  - BLOOD CREATININE DECREASED [None]
  - BLOOD MAGNESIUM DECREASED [None]
  - DRUG DISPENSING ERROR [None]
